FAERS Safety Report 5327437-0 (Version None)
Quarter: 2007Q2

REPORT INFORMATION
  Report Type: 
  Country: None (occurrence: None)
  Receive Date: 20070517
  Receipt Date: 20070507
  Transmission Date: 20071010
  Serious: Yes (Hospitalization)
  Sender: FDA-Public Use
  Company Number: US-KINGPHARMUSA00001-K200700567

PATIENT

DRUGS (12)
  1. SKELAXIN [Suspect]
     Dates: end: 20070401
  2. TRAZODONE HCL [Interacting]
     Dates: end: 20070401
  3. OPANA [Interacting]
     Dates: end: 20070401
  4. OPANA ER [Interacting]
     Dates: end: 20070401
  5. VISTARIL  /00058402/ [Interacting]
     Dates: end: 20070401
  6. AMBIEN [Concomitant]
  7. QUININE SULFATE [Concomitant]
  8. SINEMET [Concomitant]
  9. JANUVIA [Concomitant]
  10. AMARYL [Concomitant]
  11. INSULIN [Concomitant]
  12. ULTRAM [Concomitant]

REACTIONS (4)
  - CONFUSIONAL STATE [None]
  - DRUG INTERACTION [None]
  - DRUG TOXICITY [None]
  - TROPONIN INCREASED [None]
